FAERS Safety Report 21178979 (Version 1)
Quarter: 2022Q3

REPORT INFORMATION
  Report Type: Report from Study
  Country: BE (occurrence: BE)
  Receive Date: 20220805
  Receipt Date: 20220805
  Transmission Date: 20221027
  Serious: Yes (Other)
  Sender: FDA-Public Use
  Company Number: BE-ABBVIE-22K-013-4374453-00

PATIENT
  Sex: Female
  Weight: 102 kg

DRUGS (5)
  1. UPADACITINIB [Suspect]
     Active Substance: UPADACITINIB
     Indication: Axial spondyloarthritis
     Route: 048
     Dates: start: 20220208, end: 20220411
  2. UPADACITINIB [Suspect]
     Active Substance: UPADACITINIB
     Route: 048
     Dates: start: 20220416
  3. ETHINYL ESTRADIOL\LEVONORGESTREL [Concomitant]
     Active Substance: ETHINYL ESTRADIOL\LEVONORGESTREL
     Indication: Contraception
     Route: 048
     Dates: start: 2010
  4. IBUPROFEN [Concomitant]
     Active Substance: IBUPROFEN
     Indication: Axial spondyloarthritis
     Dosage: AS NEEDED
     Route: 048
     Dates: start: 2021
  5. COMIRNATY [Concomitant]
     Active Substance: TOZINAMERAN
     Indication: COVID-19 prophylaxis
     Dosage: 1 VIAL, ONCE
     Route: 030
     Dates: start: 20220312, end: 20220312

REACTIONS (2)
  - Lipoma [Recovered/Resolved]
  - Pityriasis [Recovered/Resolved]

NARRATIVE: CASE EVENT DATE: 20220301
